FAERS Safety Report 20109686 (Version 3)
Quarter: 2022Q1

REPORT INFORMATION
  Report Type: Report from Study
  Country: MX (occurrence: MX)
  Receive Date: 20211124
  Receipt Date: 20220224
  Transmission Date: 20220423
  Serious: Yes (Other)
  Sender: FDA-Public Use
  Company Number: MX-JNJFOC-20210301150

PATIENT
  Age: 66 Year
  Sex: Female
  Weight: 68 kg

DRUGS (3)
  1. SIMPONI [Suspect]
     Active Substance: GOLIMUMAB
     Indication: Ankylosing spondylitis
     Route: 058
     Dates: start: 20180903
  2. ASTRAZENECA COVID-19 VACCINE [Suspect]
     Active Substance: AZD-1222
     Indication: Immunisation
  3. THEOPHYLLINE [Concomitant]
     Active Substance: THEOPHYLLINE

REACTIONS (8)
  - COVID-19 [Unknown]
  - Vertigo [Unknown]
  - Arthralgia [Unknown]
  - Fall [Unknown]
  - Injury [Unknown]
  - Cough [Unknown]
  - Memory impairment [Unknown]
  - Pain in extremity [Unknown]

NARRATIVE: CASE EVENT DATE: 20210101
